FAERS Safety Report 5186304-6 (Version None)
Quarter: 2006Q4

REPORT INFORMATION
  Report Type: 
  Country: None (occurrence: None)
  Receive Date: 20061220
  Receipt Date: 20061213
  Transmission Date: 20070319
  Serious: Yes (Hospitalization)
  Sender: FDA-Public Use
  Company Number: US-JNJFOC-20061204674

PATIENT
  Sex: Female
  Weight: 54.43 kg

DRUGS (2)
  1. RISPERDAL [Suspect]
     Indication: AGITATION
  2. ATENOLOL [Concomitant]
     Indication: BLOOD PRESSURE
     Route: 048

REACTIONS (3)
  - HEART RATE INCREASED [None]
  - HYPOXIA [None]
  - PULMONARY OEDEMA [None]
